FAERS Safety Report 7859534-X (Version None)
Quarter: 2011Q4

REPORT INFORMATION
  Report Type: 
  Country: None (occurrence: None)
  Receive Date: 20111026
  Receipt Date: 20111026
  Transmission Date: 20120403
  Serious: Yes (Life-Threatening, Hospitalization)
  Sender: FDA-Public Use
  Company Number: None

PATIENT
  Age: 49 Year
  Sex: Male
  Weight: 69.6 kg

DRUGS (2)
  1. DIVALPROEX SODIUM [Suspect]
     Indication: MANIA
     Dosage: 2 TAB AT BEDTIME PO
     Route: 048
     Dates: start: 20110202, end: 20110512
  2. DIVALPROEX SODIUM [Suspect]
     Indication: BIPOLAR DISORDER
     Dosage: 2 TAB AT BEDTIME PO
     Route: 048
     Dates: start: 20110202, end: 20110512

REACTIONS (3)
  - HYPERAMMONAEMIA [None]
  - DRUG LEVEL INCREASED [None]
  - CONFUSIONAL STATE [None]
